FAERS Safety Report 6907304-9 (Version None)
Quarter: 2010Q3

REPORT INFORMATION
  Report Type: 
  Country: None (occurrence: None)
  Receive Date: 20100730
  Receipt Date: 20090211
  Transmission Date: 20110219
  Serious: Yes (Other)
  Sender: FDA-Public Use
  Company Number: 003

PATIENT
  Age: 71 Year

DRUGS (2)
  1. DR. FRANK'S JOINT + MUSCLE PAIN RELIEF [Suspect]
     Indication: ARTHRALGIA
     Dosage: 9 SPRAYS/DAY
  2. DR. FRANK'S HERBAL JOINT RELIEF [Suspect]
     Dosage: 4/DAY

REACTIONS (2)
  - CEREBROVASCULAR ACCIDENT [None]
  - GAIT DISTURBANCE [None]
